FAERS Safety Report 10192691 (Version 1)
Quarter: 2014Q2

REPORT INFORMATION
  Report Type: Spontaneous
  Country: US (occurrence: US)
  Receive Date: 20140523
  Receipt Date: 20140523
  Transmission Date: 20141212
  Serious: No
  Sender: FDA-Public Use
  Company Number: US-ASTRAZENECA-2013SE83924

PATIENT
  Age: 33 Year
  Sex: Male
  Weight: 99.8 kg

DRUGS (2)
  1. PULMICORT FLEXHALER [Suspect]
     Indication: ASTHMA
     Dosage: ONE PUFF ONCE A DAY
     Route: 055
  2. PULMICORT FLEXHALER [Suspect]
     Indication: ASTHMA
     Dosage: ONE PUFF TWO TIMES A DAY
     Route: 055
     Dates: start: 2013, end: 201311

REACTIONS (3)
  - Asthma [Recovered/Resolved]
  - Multiple allergies [Unknown]
  - Intentional product misuse [Unknown]
